FAERS Safety Report 19790992 (Version 2)
Quarter: 2021Q3

REPORT INFORMATION
  Report Type: Spontaneous
  Country: JP (occurrence: JP)
  Receive Date: 20210906
  Receipt Date: 20210921
  Transmission Date: 20211014
  Serious: No
  Sender: FDA-Public Use
  Company Number: NVSJ2021JP013077

PATIENT
  Age: 75 Year
  Sex: Male

DRUGS (6)
  1. CARVEDILOL. [Suspect]
     Active Substance: CARVEDILOL
     Dosage: 10 MG
     Route: 048
  2. CARVEDILOL. [Suspect]
     Active Substance: CARVEDILOL
     Dosage: 5 MG
     Route: 048
  3. ENTRESTO [Suspect]
     Active Substance: SACUBITRIL\VALSARTAN
     Indication: CARDIAC FAILURE
     Dosage: 100 MG
     Route: 048
     Dates: start: 20210729, end: 20210820
  4. ENTRESTO [Suspect]
     Active Substance: SACUBITRIL\VALSARTAN
     Dosage: 200 MG
     Route: 048
     Dates: start: 20210820, end: 20210825
  5. CARVEDILOL. [Suspect]
     Active Substance: CARVEDILOL
     Indication: VENTRICULAR TACHYCARDIA
     Dosage: 2.5 MG
     Route: 048
  6. CARVEDILOL. [Suspect]
     Active Substance: CARVEDILOL
     Dosage: 2.5 MG
     Route: 048

REACTIONS (1)
  - Blood pressure decreased [Unknown]

NARRATIVE: CASE EVENT DATE: 20210825
